FAERS Safety Report 19704415 (Version 1)
Quarter: 2021Q3

REPORT INFORMATION
  Report Type: Spontaneous
  Country: US (occurrence: US)
  Receive Date: 20210813
  Receipt Date: 20210813
  Transmission Date: 20211014
  Serious: Yes (Hospitalization)
  Sender: FDA-Public Use
  Company Number: None

PATIENT
  Age: 69 Year
  Sex: Male

DRUGS (1)
  1. ERLEADA [Suspect]
     Active Substance: APALUTAMIDE
     Indication: PROSTATE CANCER
     Route: 048
     Dates: start: 20181115

REACTIONS (4)
  - Dyspnoea [None]
  - Erythema [None]
  - Myocardial infarction [None]
  - Poor peripheral circulation [None]

NARRATIVE: CASE EVENT DATE: 20210615
